FAERS Safety Report 5981958-6 (Version None)
Quarter: 2008Q4

REPORT INFORMATION
  Report Type: 
  Country: None (occurrence: None)
  Receive Date: 20081202
  Receipt Date: 20081117
  Transmission Date: 20090506
  Serious: Yes (Hospitalization)
  Sender: FDA-Public Use
  Company Number: KV200800267

PATIENT
  Age: 87 Year
  Sex: Female
  Weight: 61.2 kg

DRUGS (1)
  1. ISOSORBIDE MONONITRATE [Suspect]
     Indication: ANGINA PECTORIS
     Dosage: 30 MG, ORAL
     Route: 048
     Dates: start: 20060101

REACTIONS (2)
  - DYSPNOEA [None]
  - SYNCOPE [None]
